FAERS Safety Report 6174267-6 (Version None)
Quarter: 2009Q2

REPORT INFORMATION
  Report Type: 
  Country: None (occurrence: None)
  Receive Date: 20090430
  Receipt Date: 20080425
  Transmission Date: 20091009
  Serious: No
  Sender: FDA-Public Use
  Company Number: US-ASTRAZENECA-2008UW08507

PATIENT
  Sex: Male

DRUGS (2)
  1. NEXIUM [Suspect]
     Indication: ABDOMINAL PAIN UPPER
     Dosage: 1 CAPSULE
     Route: 048
     Dates: start: 20080425, end: 20080425
  2. NEXIUM [Suspect]
     Indication: ABDOMINAL DISCOMFORT
     Dosage: 1 CAPSULE
     Route: 048
     Dates: start: 20080425, end: 20080425

REACTIONS (2)
  - FEELING HOT [None]
  - FLATULENCE [None]
